FAERS Safety Report 14347867 (Version 1)
Quarter: 2018Q1

REPORT INFORMATION
  Report Type: Spontaneous
  Country: FR (occurrence: FR)
  Receive Date: 20180103
  Receipt Date: 20180103
  Transmission Date: 20180509
  Serious: Yes (Death)
  Sender: FDA-Public Use
  Company Number: FR-JNJFOC-20180100850

PATIENT
  Sex: Male

DRUGS (11)
  1. CYCLOPHOSPHAMIDE. [Suspect]
     Active Substance: CYCLOPHOSPHAMIDE
     Indication: OSTEOSARCOMA
     Route: 065
  2. ZOLEDRONIC ACID [Suspect]
     Active Substance: ZOLEDRONIC ACID
     Indication: OSTEOSARCOMA
     Dosage: 10 MONTHLY INTRAVENOUS INFUSIONS DURING THE PRE AND POSTOPERATIVE TREATMENT PHASES
     Route: 065
  3. LEUCOVORIN. [Suspect]
     Active Substance: LEUCOVORIN
     Indication: OSTEOSARCOMA
     Dosage: 20H AFTER 15MG MTX INFUSION UP TO AT LEAST 11 DOSES EVERY 6H, OR MTX LEVEL LESS THAN 0.15 MM/L
     Route: 065
  4. CARBOPLATIN. [Suspect]
     Active Substance: CARBOPLATIN
     Indication: OSTEOSARCOMA
     Route: 065
  5. ETOPOSIDE. [Suspect]
     Active Substance: ETOPOSIDE
     Indication: OSTEOSARCOMA
     Dosage: OVER 1 H IN 250-500 ML SALINE SERUM FOR 4 DAYS
     Route: 065
  6. MESNA. [Suspect]
     Active Substance: MESNA
     Indication: OSTEOSARCOMA
     Dosage: CONTINUOUS INFUSION FOR 4 DAYS
     Route: 065
  7. IFOSFAMIDE. [Suspect]
     Active Substance: IFOSFAMIDE
     Indication: OSTEOSARCOMA
     Dosage: OVER 3 H IN 250-500 ML IN SALINE SERUM FOR 4 DAYS
     Route: 065
  8. CISPLATIN. [Suspect]
     Active Substance: CISPLATIN
     Indication: OSTEOSARCOMA
     Dosage: OVER 4 H IN 250 ML SALINE SERUM ONCE ON DAY TWO AFTER THE END OF DOXORUBICIN
     Route: 065
  9. METHOTREXATE. [Suspect]
     Active Substance: METHOTREXATE
     Indication: OSTEOSARCOMA
     Dosage: IN 1L OF 5PER CENT  DEXTROSE IN WATER WITH 1MEQ/KG OF SODIUM BICARBONATE GIVEN AS 4H INFUSION ON D1
     Route: 065
  10. DOXORUBICIN HYDROCHLORIDE. [Suspect]
     Active Substance: DOXORUBICIN HYDROCHLORIDE
     Indication: OSTEOSARCOMA
     Dosage: OVER 6 H IN 250 ML 5PER CENT GLUCOSE WAS GIVEN DAILY THE FIRST TWO DAYS
     Route: 065
  11. LEUCOVORIN. [Suspect]
     Active Substance: LEUCOVORIN
     Indication: OSTEOSARCOMA
     Dosage: 20H AFTER 15MG MTX INFUSION UP TO AT LEAST 11 DOSES EVERY 6H, OR MTX LEVEL LESS THAN 0.15 MM/L
     Route: 065

REACTIONS (3)
  - Product use in unapproved indication [Unknown]
  - Toxicity to various agents [Fatal]
  - Off label use [Unknown]
